FAERS Safety Report 7743917-2 (Version None)
Quarter: 2011Q3

REPORT INFORMATION
  Report Type: 
  Country: None (occurrence: None)
  Receive Date: 20110909
  Receipt Date: 20110909
  Transmission Date: 20111222
  Serious: Yes (Other)
  Sender: FDA-Public Use
  Company Number: None

PATIENT
  Age: 65 Year
  Sex: Female
  Weight: 57.1532 kg

DRUGS (1)
  1. NITROFUR LIQUID [Suspect]
     Indication: URINARY TRACT INFECTION
     Dosage: 100 MG /BID CAP TWICE A DAY MOUTH AUGUST 10, 11, 12, 13
     Route: 048

REACTIONS (11)
  - VOMITING [None]
  - CONSTIPATION [None]
  - DYSPEPSIA [None]
  - PAIN [None]
  - MALAISE [None]
  - CHEST PAIN [None]
  - DECREASED APPETITE [None]
  - FATIGUE [None]
  - SOMNOLENCE [None]
  - DYSPNOEA [None]
  - DIARRHOEA [None]
